FAERS Safety Report 14979278 (Version 5)
Quarter: 2025Q3

REPORT INFORMATION
  Report Type: Spontaneous
  Country: EU (occurrence: EU)
  Receive Date: 20180606
  Receipt Date: 20250919
  Transmission Date: 20251020
  Serious: Yes (Other)
  Sender: SANOFI AVENTIS
  Company Number: EU-MLMSERVICE-20180510-1183123-2

PATIENT
  Age: 35 Year
  Sex: Female

DRUGS (3)
  1. DOCETAXEL [Suspect]
     Active Substance: DOCETAXEL
     Indication: Invasive ductal breast carcinoma
  2. CYCLOPHOSPHAMIDE [Suspect]
     Active Substance: CYCLOPHOSPHAMIDE
     Indication: Invasive ductal breast carcinoma
  3. GRANULOCYTE COLONY-STIMULATING FACTOR NOS [Concomitant]
     Active Substance: GRANULOCYTE COLONY-STIMULATING FACTOR NOS

REACTIONS (15)
  - Periarticular thenar erythema with onycholysis [Recovering/Resolving]
  - Toxicity to various agents [Recovering/Resolving]
  - Skin toxicity [Recovering/Resolving]
  - Skin plaque [Recovering/Resolving]
  - Skin exfoliation [Recovering/Resolving]
  - Hyperkeratosis [Recovering/Resolving]
  - Parakeratosis [Recovering/Resolving]
  - Lymphocytic infiltration [Recovering/Resolving]
  - Inflammation [Recovering/Resolving]
  - Eosinophilia [Recovering/Resolving]
  - Epidermal necrosis [Recovering/Resolving]
  - Skin lesion [Recovering/Resolving]
  - Loss of personal independence in daily activities [Recovering/Resolving]
  - Erythema [Recovering/Resolving]
  - Pain of skin [Recovering/Resolving]
